FAERS Safety Report 18629743 (Version 3)
Quarter: 2021Q1

REPORT INFORMATION
  Report Type: Spontaneous
  Country: US (occurrence: US)
  Receive Date: 20201217
  Receipt Date: 20210104
  Transmission Date: 20210419
  Serious: Yes (Other)
  Sender: FDA-Public Use
  Company Number: US-PFIZER INC-2020447599

PATIENT
  Age: 41 Year
  Sex: Male
  Weight: 105 kg

DRUGS (4)
  1. ATORVASTATIN CALCIUM. [Suspect]
     Active Substance: ATORVASTATIN CALCIUM
     Indication: BLOOD CHOLESTEROL
     Dosage: 40 MG, 1X/DAY
     Route: 048
  2. PAROXETINE. [Concomitant]
     Active Substance: PAROXETINE
     Dosage: 20 MG
     Route: 048
  3. ACETAMINOPHEN;HYDROCODONE [Concomitant]
     Active Substance: ACETAMINOPHEN\HYDROCODONE
     Dosage: 1 TABLET EVERY 6 HOURS AS NEEDED FOR PAIN
     Route: 048
  4. OMEPRAZOLE. [Concomitant]
     Active Substance: OMEPRAZOLE
     Dosage: 20 MG, DAILY
     Route: 048

REACTIONS (14)
  - Muscle injury [Unknown]
  - Tenosynovitis [Unknown]
  - Fracture [Unknown]
  - Tendon injury [Unknown]
  - Arthralgia [Unknown]
  - Epicondylitis [Unknown]
  - Soft tissue injury [Unknown]
  - Osteoarthritis [Unknown]
  - Impaired healing [Unknown]
  - Synovitis [Unknown]
  - Tendon rupture [Not Recovered/Not Resolved]
  - Muscle strain [Unknown]
  - Peripheral nerve lesion [Unknown]
  - Limb injury [Unknown]

NARRATIVE: CASE EVENT DATE: 20200808
